FAERS Safety Report 10165988 (Version 2)
Quarter: 2014Q2

REPORT INFORMATION
  Report Type: Report from Study
  Country: US (occurrence: US)
  Receive Date: 20140511
  Receipt Date: 20140612
  Transmission Date: 20141212
  Serious: Yes (Hospitalization, Other)
  Sender: FDA-Public Use
  Company Number: PHEH2014US009446

PATIENT
  Sex: Female

DRUGS (3)
  1. MYFORTIC [Suspect]
     Indication: LIVER TRANSPLANT
     Dosage: 180 MG, BID
     Route: 048
  2. NEORAL [Suspect]
     Indication: LIVER TRANSPLANT
     Dosage: 75 MG, (THREE CAPSULE) BID
     Route: 048
  3. NEORAL [Suspect]
     Dosage: 25 MG, BID
     Route: 048

REACTIONS (2)
  - Upper limb fracture [Unknown]
  - Neoplasm malignant [Unknown]
